FAERS Safety Report 24727383 (Version 1)
Quarter: 2024Q4

REPORT INFORMATION
  Report Type: Spontaneous
  Country: US (occurrence: US)
  Receive Date: 20241212
  Receipt Date: 20241212
  Transmission Date: 20250114
  Serious: No
  Sender: GLAND PHARMA LTD
  Company Number: US-GLANDPHARMA-US-2024GLNSPO01161

PATIENT

DRUGS (2)
  1. DOCETAXEL [Suspect]
     Active Substance: DOCETAXEL
     Indication: Product used for unknown indication
     Route: 065
  2. CYRAMZA [Concomitant]
     Active Substance: RAMUCIRUMAB
     Indication: Product used for unknown indication
     Route: 065

REACTIONS (5)
  - Hypertension [Recovered/Resolved]
  - Renal disorder [Not Recovered/Not Resolved]
  - Fatigue [Unknown]
  - Alopecia [Unknown]
  - Madarosis [Unknown]
